FAERS Safety Report 6785828-5 (Version None)
Quarter: 2010Q2

REPORT INFORMATION
  Report Type: 
  Country: None (occurrence: None)
  Receive Date: 20100623
  Receipt Date: 20100614
  Transmission Date: 20101027
  Serious: Yes (Other)
  Sender: FDA-Public Use
  Company Number: ZA-PFIZER INC-2010074555

PATIENT
  Age: 50 Year
  Sex: Male

DRUGS (2)
  1. ASPAVOR [Suspect]
     Indication: HYPERCHOLESTEROLAEMIA
     Dosage: UNK
     Route: 048
  2. SIMVASTATIN [Suspect]
     Dosage: UNK

REACTIONS (2)
  - CHEST PAIN [None]
  - MYALGIA [None]
